FAERS Safety Report 7569551-5 (Version None)
Quarter: 2011Q2

REPORT INFORMATION
  Report Type: 
  Country: None (occurrence: None)
  Receive Date: 20110624
  Receipt Date: 20110610
  Transmission Date: 20111010
  Serious: Yes (Hospitalization, Other)
  Sender: FDA-Public Use
  Company Number: US-CELGENEUS-163-21880-11061789

PATIENT
  Sex: Male
  Weight: 95.7 kg

DRUGS (3)
  1. REVLIMID [Suspect]
     Dosage: 25 MILLIGRAM
     Route: 048
     Dates: start: 20110513
  2. DEXAMETHASONE [Concomitant]
     Dosage: 2.8571 MILLIGRAM
     Route: 048
     Dates: start: 20110523
  3. VELCADE [Suspect]
     Route: 058
     Dates: start: 20110523

REACTIONS (5)
  - BACK PAIN [None]
  - OEDEMA PERIPHERAL [None]
  - RENAL FAILURE [None]
  - DEEP VEIN THROMBOSIS [None]
  - ILEUS PARALYTIC [None]
